FAERS Safety Report 13817238 (Version 2)
Quarter: 2017Q3

REPORT INFORMATION
  Report Type: Spontaneous
  Country: US (occurrence: US)
  Receive Date: 20170731
  Receipt Date: 20170821
  Transmission Date: 20171127
  Serious: Yes (Hospitalization)
  Sender: FDA-Public Use
  Company Number: US-MISSION PHARMACAL COMPANY-2023959

PATIENT
  Age: 36 Year
  Sex: Female

DRUGS (1)
  1. THIOLA [Suspect]
     Active Substance: TIOPRONIN
     Indication: CYSTINURIA
     Route: 065
     Dates: start: 20170629

REACTIONS (5)
  - Pain [Unknown]
  - Nausea [Unknown]
  - Drug ineffective [Unknown]
  - Infection [Unknown]
  - Dehydration [Unknown]
